FAERS Safety Report 16995306 (Version 15)
Quarter: 2022Q3

REPORT INFORMATION
  Report Type: Report from Study
  Country: US (occurrence: US)
  Receive Date: 20191105
  Receipt Date: 20220706
  Transmission Date: 20221027
  Serious: Yes (Hospitalization, Other)
  Sender: FDA-Public Use
  Company Number: US-SHIRE-US201936135

PATIENT
  Age: 70 Year
  Sex: Female
  Weight: 70 kg

DRUGS (45)
  1. HUMAN IMMUNOGLOBULIN G [Suspect]
     Active Substance: HUMAN IMMUNOGLOBULIN G
     Indication: Immunodeficiency common variable
     Dosage: 12 GRAM, Q2WEEKS
     Route: 058
     Dates: start: 20180911
  2. HUMAN IMMUNOGLOBULIN G [Suspect]
     Active Substance: HUMAN IMMUNOGLOBULIN G
     Indication: Alpha-1 antitrypsin deficiency
     Dosage: 12 GRAM, Q2WEEKS
     Route: 058
     Dates: start: 20180917
  3. SYMBICORT [Concomitant]
     Active Substance: BUDESONIDE\FORMOTEROL FUMARATE DIHYDRATE
     Route: 065
  4. ACETAMINOPHEN [Concomitant]
     Active Substance: ACETAMINOPHEN
     Route: 065
  5. DIPHENHYDRAMINE [Concomitant]
     Active Substance: DIPHENHYDRAMINE
     Route: 065
  6. LORATADINE [Concomitant]
     Active Substance: LORATADINE
     Route: 065
  7. EPINEPHRINE [Concomitant]
     Active Substance: EPINEPHRINE
     Route: 065
  8. NASACORT [Concomitant]
     Active Substance: TRIAMCINOLONE ACETONIDE
     Route: 065
  9. SOMA [Concomitant]
     Active Substance: CARISOPRODOL
     Route: 065
  10. PROBIOTICS NOS [Concomitant]
     Active Substance: PROBIOTICS NOS
     Route: 065
  11. TYLENOL ARTHRITIS PAIN [Concomitant]
     Active Substance: ACETAMINOPHEN
     Route: 065
  12. NATURE-THROID [Concomitant]
     Active Substance: THYROID, PORCINE
     Route: 065
  13. PREMARIN [Concomitant]
     Active Substance: ESTROGENS, CONJUGATED
     Route: 065
  14. ASMANEX [Concomitant]
     Active Substance: MOMETASONE FUROATE
     Route: 065
  15. LOVASTATIN [Concomitant]
     Active Substance: LOVASTATIN
     Route: 065
  16. CLOBETASOL [Concomitant]
     Active Substance: CLOBETASOL
     Route: 065
  17. HALOBETASOL PROPIONATE [Concomitant]
     Active Substance: HALOBETASOL PROPIONATE
     Route: 065
  18. VENTOLIN [Concomitant]
     Active Substance: ALBUTEROL SULFATE
     Route: 065
  19. CITALOPRAM [Concomitant]
     Active Substance: CITALOPRAM HYDROBROMIDE
     Route: 065
  20. ALPRAZOLAM [Concomitant]
     Active Substance: ALPRAZOLAM
     Route: 065
  21. ALBUTEROL [Concomitant]
     Active Substance: ALBUTEROL
     Route: 065
  22. CYCLOBENZAPRINE [Concomitant]
     Active Substance: CYCLOBENZAPRINE
     Route: 065
  23. BENZOYL PEROXIDE\CLINDAMYCIN PHOSPHATE [Concomitant]
     Active Substance: BENZOYL PEROXIDE\CLINDAMYCIN PHOSPHATE
     Route: 065
  24. DICLOFENAC [Concomitant]
     Active Substance: DICLOFENAC
     Route: 065
  25. FISH OIL [Concomitant]
     Active Substance: FISH OIL
     Route: 065
  26. LEVOFLOXACIN [Concomitant]
     Active Substance: LEVOFLOXACIN
     Route: 065
  27. CALCIUM\CHOLECALCIFEROL [Concomitant]
     Active Substance: CALCIUM\CHOLECALCIFEROL
     Route: 065
  28. MONTELUKAST [Concomitant]
     Active Substance: MONTELUKAST SODIUM
     Route: 065
  29. CO Q 10 [UBIDECARENONE] [Concomitant]
     Route: 065
  30. MUPIROCIN [Concomitant]
     Active Substance: MUPIROCIN
     Route: 065
  31. THYROID [Concomitant]
     Active Substance: LEVOTHYROXINE\LIOTHYRONINE
     Route: 065
  32. DIETARY SUPPLEMENT\PROBIOTICS [Concomitant]
     Active Substance: DIETARY SUPPLEMENT\PROBIOTICS
     Route: 065
  33. HALOBETASOL PROPIONATE [Concomitant]
     Active Substance: HALOBETASOL PROPIONATE
     Route: 065
  34. ALBUTEROL SULFATE [Concomitant]
     Active Substance: ALBUTEROL SULFATE
     Route: 065
  35. CYCLOBENZAPRINE HYDROCHLORIDE [Concomitant]
     Active Substance: CYCLOBENZAPRINE HYDROCHLORIDE
     Route: 065
  36. DICLOFENAC SODIUM [Concomitant]
     Active Substance: DICLOFENAC SODIUM
     Route: 065
  37. MONTELUKAST SODIUM [Concomitant]
     Active Substance: MONTELUKAST SODIUM
     Route: 065
  38. EPIPEN [Concomitant]
     Active Substance: EPINEPHRINE
     Route: 065
  39. XOLAIR [Concomitant]
     Active Substance: OMALIZUMAB
     Indication: Gastroenteritis viral
     Route: 065
  40. XOLAIR [Concomitant]
     Active Substance: OMALIZUMAB
     Indication: Respiratory tract infection
     Route: 065
  41. PREDNISONE [Concomitant]
     Active Substance: PREDNISONE
     Indication: Respiratory tract infection
     Route: 065
  42. FAMOTIDINE [Concomitant]
     Active Substance: FAMOTIDINE
  43. AZITHROMYCIN [Concomitant]
     Active Substance: AZITHROMYCIN
     Route: 065
  44. AMLODIPINE (ALS BESILAAT) SANDOZ [Concomitant]
     Route: 065
  45. GABAPENTIN [Concomitant]
     Active Substance: GABAPENTIN

REACTIONS (12)
  - Knee arthroplasty [Unknown]
  - Respiratory tract infection [Recovered/Resolved]
  - Device breakage [Unknown]
  - Gastroenteritis viral [Unknown]
  - Nasopharyngitis [Unknown]
  - Upper respiratory tract infection [Unknown]
  - Drug hypersensitivity [Unknown]
  - Rash [Unknown]
  - COVID-19 [Unknown]
  - Urinary tract infection [Unknown]
  - Product dose omission issue [Unknown]
  - Product use in unapproved indication [Unknown]

NARRATIVE: CASE EVENT DATE: 20200302
